FAERS Safety Report 8277870-2 (Version None)
Quarter: 2012Q2

REPORT INFORMATION
  Report Type: 
  Country: None (occurrence: None)
  Receive Date: 20120412
  Receipt Date: 20120406
  Transmission Date: 20120825
  Serious: Yes (Other)
  Sender: FDA-Public Use
  Company Number: US-PFIZER INC-2012066608

PATIENT
  Sex: Female
  Weight: 48.1 kg

DRUGS (2)
  1. PREMARIN [Suspect]
     Indication: UTERINE CANCER
     Dosage: 0.1 MG, DAILY (1 TAB)
  2. PREMARIN [Suspect]
     Indication: OFF LABEL USE
     Dosage: UNK, 1X/DAY
     Route: 048
     Dates: start: 19680101, end: 20120301

REACTIONS (13)
  - UTERINE INFLAMMATION [None]
  - ARTHRITIS [None]
  - URINARY TRACT INFECTION [None]
  - FATIGUE [None]
  - DISCOMFORT [None]
  - MUSCLE TIGHTNESS [None]
  - POLLAKIURIA [None]
  - DYSURIA [None]
  - HEADACHE [None]
  - HEAD DISCOMFORT [None]
  - VAGINAL INFLAMMATION [None]
  - PRURITUS [None]
  - TENSION HEADACHE [None]
